FAERS Safety Report 6717172-6 (Version None)
Quarter: 2010Q2

REPORT INFORMATION
  Report Type: 
  Country: None (occurrence: None)
  Receive Date: 20100510
  Receipt Date: 20100426
  Transmission Date: 20101027
  Serious: Yes (Other)
  Sender: FDA-Public Use
  Company Number: PHHY2010US26922

PATIENT

DRUGS (1)
  1. SANDOSTATIN LAR [Suspect]
     Indication: NEOPLASM MALIGNANT

REACTIONS (1)
  - PRESYNCOPE [None]
